FAERS Safety Report 12486950 (Version 1)
Quarter: 2016Q2

REPORT INFORMATION
  Report Type: Spontaneous
  Country: US (occurrence: None)
  Receive Date: 20160621
  Receipt Date: 20160621
  Transmission Date: 20160815
  Serious: No
  Sender: FDA-Public Use
  Company Number: None

PATIENT
  Sex: Female

DRUGS (1)
  1. HUMULIN 70/30 [Suspect]
     Active Substance: INSULIN HUMAN

REACTIONS (6)
  - Hypersensitivity [None]
  - Swollen tongue [None]
  - Peripheral swelling [None]
  - Throat tightness [None]
  - Tongue disorder [None]
  - Urine output decreased [None]
